FAERS Safety Report 6604262-1 (Version None)
Quarter: 2010Q1

REPORT INFORMATION
  Report Type: 
  Country: None (occurrence: None)
  Receive Date: 20100226
  Receipt Date: 20090727
  Transmission Date: 20100710
  Serious: No
  Sender: FDA-Public Use
  Company Number: A0798836A

PATIENT
  Age: 57 Year
  Sex: Female

DRUGS (7)
  1. LAMICTAL CD [Suspect]
     Indication: BIPOLAR DISORDER
     Dosage: 225MG PER DAY
     Route: 048
  2. XANAX [Concomitant]
  3. KLONOPIN [Concomitant]
  4. CELEXA [Concomitant]
  5. LAMOTRIGINE [Concomitant]
  6. LITHIUM [Concomitant]
  7. AMBIEN [Concomitant]

REACTIONS (1)
  - DYSKINESIA [None]
